FAERS Safety Report 17591578 (Version 1)
Quarter: 2020Q1

REPORT INFORMATION
  Report Type: Spontaneous
  Country: US (occurrence: US)
  Receive Date: 20200326
  Receipt Date: 20200326
  Transmission Date: 20200409
  Serious: Yes (Hospitalization)
  Sender: FDA-Public Use
  Company Number: None

PATIENT
  Age: 73 Year
  Sex: Female

DRUGS (1)
  1. REPATHA [Suspect]
     Active Substance: EVOLOCUMAB
     Indication: CARDIAC FAILURE
     Route: 058
     Dates: start: 20190815

REACTIONS (3)
  - Asthenia [None]
  - Lower limb fracture [None]
  - Cardiac failure congestive [None]

NARRATIVE: CASE EVENT DATE: 20200101
